FAERS Safety Report 6766570-3 (Version None)
Quarter: 2010Q2

REPORT INFORMATION
  Report Type: 
  Country: None (occurrence: None)
  Receive Date: 20100611
  Receipt Date: 20100602
  Transmission Date: 20101027
  Serious: Yes (Hospitalization)
  Sender: FDA-Public Use
  Company Number: US-ROCHE-708291

PATIENT
  Age: 58 Year
  Sex: Female
  Weight: 76 kg

DRUGS (9)
  1. PEGINTERFERON ALFA-2A [Suspect]
     Indication: HEPATITIS C
     Route: 058
     Dates: start: 20090605
  2. PEGINTERFERON ALFA-2A [Suspect]
     Route: 058
     Dates: end: 20100312
  3. RIBAVIRIN [Suspect]
     Indication: HEPATITIS C
     Route: 048
     Dates: start: 20090605, end: 20100305
  4. BLINDED BOCEPREVIR [Suspect]
     Indication: HEPATITIS C
     Route: 048
     Dates: start: 20090701, end: 20100305
  5. GLYBURIDE [Concomitant]
     Dates: start: 20070101
  6. CARTIA XT [Concomitant]
     Dates: start: 19980101
  7. SPIRONOLACTONE [Concomitant]
     Dates: start: 20040101
  8. HYZAAR [Concomitant]
     Dates: start: 20020101
  9. HUMALOG [Concomitant]
     Dates: start: 20000101

REACTIONS (5)
  - ASTHENIA [None]
  - HYPONATRAEMIA [None]
  - LETHARGY [None]
  - STAPHYLOCOCCAL BACTERAEMIA [None]
  - THROMBOCYTOPENIA [None]
